FAERS Safety Report 7792838-8 (Version None)
Quarter: 2011Q4

REPORT INFORMATION
  Report Type: 
  Country: None (occurrence: None)
  Receive Date: 20111003
  Receipt Date: 20110928
  Transmission Date: 20120403
  Serious: Yes (Hospitalization)
  Sender: FDA-Public Use
  Company Number: US-GLAXOSMITHKLINE-B0699465A

PATIENT
  Sex: Male

DRUGS (1)
  1. AVANDIA [Suspect]
     Indication: DIABETES MELLITUS
     Dosage: 4MG PER DAY
     Route: 048

REACTIONS (4)
  - CHEST PAIN [None]
  - HYPOGLYCAEMIA [None]
  - HYPERTENSION [None]
  - HYPERLIPIDAEMIA [None]
